FAERS Safety Report 4984711-5 (Version None)
Quarter: 2006Q2

REPORT INFORMATION
  Report Type: 
  Country: None (occurrence: None)
  Receive Date: 20060419
  Receipt Date: 20060403
  Transmission Date: 20061013
  Serious: Yes (Hospitalization)
  Sender: FDA-Public Use
  Company Number: JP-2006-006421

PATIENT
  Age: 25 Year
  Sex: Male
  Weight: 80 kg

DRUGS (9)
  1. BETAFERON (INTERFERON BETA - 1B) INJECTION, 250UG [Suspect]
     Indication: MULTIPLE SCLEROSIS
     Dosage: 8 MIU, SUBCUTANEOUS
     Route: 058
     Dates: start: 20020101
  2. DANTRIUM [Concomitant]
  3. INDERAL [Concomitant]
  4. RIVOTRIL (CLONAZEPAM) GRANULES [Concomitant]
  5. S.M. POWDER (SIMALDRATE, ZANTHOXYLUM AMERICANUM BARK, ZINGIBER OFFICIN [Concomitant]
  6. GASTER (FAMOTIDINE) TABLET [Concomitant]
  7. NAUZELIN (DOMPERIDONE) TABLET [Concomitant]
  8. SELBEX (TEPRENONE) GRANULES [Concomitant]
  9. ALESION (EPINASTINE HYDROCHLORIDE) TABLET [Concomitant]

REACTIONS (2)
  - CHRONIC INFLAMMATORY DEMYELINATING POLYRADICULONEUROPATHY [None]
  - MULTIPLE SCLEROSIS RELAPSE [None]
